FAERS Safety Report 23808897 (Version 1)
Quarter: 2024Q2

REPORT INFORMATION
  Report Type: Spontaneous
  Country: US (occurrence: US)
  Receive Date: 20240502
  Receipt Date: 20240502
  Transmission Date: 20240716
  Serious: No
  Sender: FDA-Public Use
  Company Number: US-ABBVIE-5719098

PATIENT
  Sex: Female
  Weight: 67 kg

DRUGS (1)
  1. OXYTROL [Suspect]
     Active Substance: OXYBUTYNIN
     Indication: Pollakiuria
     Dosage: 3.9 MILLIGRAM, 3.9MG/DAY TRANSDERMAL SYSTEM
     Route: 062
     Dates: start: 20240201

REACTIONS (3)
  - Skin discolouration [Not Recovered/Not Resolved]
  - Skin injury [Not Recovered/Not Resolved]
  - Skin irritation [Not Recovered/Not Resolved]

NARRATIVE: CASE EVENT DATE: 20240220
